FAERS Safety Report 25776987 (Version 2)
Quarter: 2025Q3

REPORT INFORMATION
  Report Type: Report from Study
  Country: ZA (occurrence: ZA)
  Receive Date: 20250909
  Receipt Date: 20250917
  Transmission Date: 20251021
  Serious: Yes (Hospitalization)
  Sender: ALEXION PHARMACEUTICALS
  Company Number: ZA-AstraZeneca-CH-00944670A

PATIENT
  Age: 79 Year
  Sex: Female

DRUGS (4)
  1. BUDESONIDE\FORMOTEROL [Suspect]
     Active Substance: BUDESONIDE\FORMOTEROL
     Indication: Asthma
  2. ESOMEPRAZOLE [Concomitant]
     Active Substance: ESOMEPRAZOLE
     Indication: Gastrooesophageal reflux disease
  3. TRAMADOL HYDROCHLORIDE [Concomitant]
     Active Substance: TRAMADOL HYDROCHLORIDE
     Indication: Pain
  4. PRAMIPEXOLE DIHYDROCHLORIDE [Concomitant]
     Active Substance: PRAMIPEXOLE DIHYDROCHLORIDE
     Indication: Parkinson^s disease

REACTIONS (11)
  - Gastric ulcer haemorrhage [Unknown]
  - Blood pressure measurement [Unknown]
  - Ear disorder [Unknown]
  - Renal disorder [Unknown]
  - Shoulder fracture [Unknown]
  - Osteoporosis [Unknown]
  - Osteoarthritis [Unknown]
  - Bone density abnormal [Unknown]
  - Asthma [Unknown]
  - Blood viscosity increased [Unknown]
  - Pulmonary embolism [Unknown]
